FAERS Safety Report 10029375 (Version 1)
Quarter: 2014Q1

REPORT INFORMATION
  Report Type: Spontaneous
  Country: ES (occurrence: ES)
  Receive Date: 20140322
  Receipt Date: 20140322
  Transmission Date: 20141002
  Serious: Yes (Other)
  Sender: FDA-Public Use
  Company Number: PHHY2014ES033912

PATIENT
  Age: 22 Year
  Sex: Male

DRUGS (3)
  1. OMALIZUMAB [Suspect]
     Indication: DERMATITIS ATOPIC
     Dosage: 600 MG, BIW
     Route: 058
  2. CICLOSPORIN [Suspect]
     Indication: DERMATITIS ATOPIC
     Dosage: 300 MG, PER DAY
     Route: 065
  3. ACYCLOVIR [Concomitant]
     Indication: CONJUNCTIVITIS
     Dosage: 800 MG, EVERY 4 HOURS

REACTIONS (10)
  - Eczema herpeticum [Recovered/Resolved]
  - Rash vesicular [Unknown]
  - Malaise [Unknown]
  - Pyrexia [Unknown]
  - Blister [Unknown]
  - Simplex virus test positive [Unknown]
  - Scab [Unknown]
  - General physical health deterioration [Unknown]
  - Conjunctivitis [Unknown]
  - Drug ineffective [Unknown]
